FAERS Safety Report 21137549 (Version 1)
Quarter: 2022Q3

REPORT INFORMATION
  Report Type: Spontaneous
  Country: SI (occurrence: None)
  Receive Date: 20220727
  Receipt Date: 20220727
  Transmission Date: 20221027
  Serious: Yes (Other)
  Sender: FDA-Public Use
  Company Number: 2022A261175

PATIENT
  Age: 76 Year
  Sex: Male

DRUGS (8)
  1. DAPAGLIFLOZIN [Suspect]
     Active Substance: DAPAGLIFLOZIN
     Indication: Renal impairment
     Route: 048
     Dates: start: 20220628, end: 20220702
  2. DAPAGLIFLOZIN [Suspect]
     Active Substance: DAPAGLIFLOZIN
     Indication: Hypertension
     Route: 048
     Dates: start: 20220628, end: 20220702
  3. PERINDOPRIL [Suspect]
     Active Substance: PERINDOPRIL
     Indication: Renal impairment
     Dosage: 1 TBL IN THE EVENING
     Route: 048
     Dates: start: 20220628, end: 20220702
  4. PERINDOPRIL [Suspect]
     Active Substance: PERINDOPRIL
     Indication: Hypertension
     Dosage: 1 TBL IN THE EVENING
     Route: 048
     Dates: start: 20220628, end: 20220702
  5. INDAPAMIDE\PERINDOPRIL ERBUMINE [Suspect]
     Active Substance: INDAPAMIDE\PERINDOPRIL ERBUMINE
     Indication: Hypertension
     Dosage: 1 TBL IN THE MORNING
     Route: 048
     Dates: start: 20220628, end: 20220702
  6. INDAPAMIDE\PERINDOPRIL ERBUMINE [Suspect]
     Active Substance: INDAPAMIDE\PERINDOPRIL ERBUMINE
     Indication: Renal impairment
     Dosage: 1 TBL IN THE MORNING
     Route: 048
     Dates: start: 20220628, end: 20220702
  7. ROSUVASTATIN CALCIUM [Concomitant]
     Active Substance: ROSUVASTATIN CALCIUM
     Route: 048
     Dates: start: 20220628
  8. CAREZA [Concomitant]
     Route: 048
     Dates: start: 202108

REACTIONS (5)
  - Tongue oedema [Recovered/Resolved]
  - Sensory loss [Recovered/Resolved]
  - Paralysis recurrent laryngeal nerve [Recovered/Resolved]
  - Laryngeal oedema [Recovered/Resolved]
  - Headache [Recovered/Resolved]

NARRATIVE: CASE EVENT DATE: 20220702
